FAERS Safety Report 4626449-X (Version None)
Quarter: 2005Q1

REPORT INFORMATION
  Report Type: 
  Country: None (occurrence: None)
  Receive Date: 20050330
  Receipt Date: 20050310
  Transmission Date: 20050727
  Serious: Yes (Hospitalization)
  Sender: FDA-Public Use
  Company Number: USA050392892

PATIENT
  Sex: Female

DRUGS (3)
  1. FORTEO [Suspect]
     Dates: start: 20040101
  2. ATROVENT [Concomitant]
  3. ALBUTEROL [Concomitant]

REACTIONS (5)
  - ASTHMA [None]
  - INFECTION [None]
  - INFLUENZA [None]
  - RESPIRATORY DISORDER [None]
  - SINUS CONGESTION [None]
